FAERS Safety Report 9063330 (Version 1)
Quarter: 2013Q1

REPORT INFORMATION
  Report Type: Spontaneous
  Country: CA (occurrence: CA)
  Receive Date: 20130213
  Receipt Date: 20130213
  Transmission Date: 20140127
  Serious: Yes (Other)
  Sender: FDA-Public Use
  Company Number: CA-CELGENEUS-028-21660-13020428

PATIENT
  Sex: Female

DRUGS (3)
  1. ABRAXANE [Suspect]
     Indication: BREAST CANCER
     Route: 041
  2. DOCETAXEL [Suspect]
     Indication: BREAST CANCER
     Route: 041
  3. FEMARA [Suspect]
     Indication: BREAST CANCER
     Dosage: 2.5 MILLIGRAM
     Route: 048

REACTIONS (3)
  - Neoplasm [Unknown]
  - Breast cancer [Unknown]
  - Neuropathy peripheral [Unknown]
